FAERS Safety Report 24960981 (Version 1)
Quarter: 2025Q1

REPORT INFORMATION
  Report Type: Report from Study
  Country: US (occurrence: US)
  Receive Date: 20250212
  Receipt Date: 20250212
  Transmission Date: 20250409
  Serious: Yes (Hospitalization)
  Sender: EISAI
  Company Number: US-Eisai-EC-2025-181694

PATIENT
  Age: 76 Year
  Sex: Male

DRUGS (1)
  1. LENVIMA [Suspect]
     Active Substance: LENVATINIB
     Indication: Hepatic cancer
     Dates: start: 20241220, end: 20241231

REACTIONS (11)
  - Hypertension [Unknown]
  - Urinary tract infection [Unknown]
  - Loss of consciousness [Unknown]
  - Colitis [Unknown]
  - Fatigue [Not Recovered/Not Resolved]
  - Dysphonia [Not Recovered/Not Resolved]
  - Blister [Not Recovered/Not Resolved]
  - Joint swelling [Not Recovered/Not Resolved]
  - Peripheral swelling [Not Recovered/Not Resolved]
  - Dry mouth [Not Recovered/Not Resolved]
  - Oral pain [Not Recovered/Not Resolved]

NARRATIVE: CASE EVENT DATE: 20241201
